FAERS Safety Report 4380070-X (Version None)
Quarter: 2004Q2

REPORT INFORMATION
  Report Type: 
  Country: None (occurrence: None)
  Receive Date: 20040617
  Receipt Date: 20020319
  Transmission Date: 20050107
  Serious: Yes (Hospitalization, Other)
  Sender: FDA-Public Use
  Company Number: US-MERCK-0203USA02020

PATIENT
  Age: 80 Year
  Sex: Male

DRUGS (2)
  1. ASPIRIN [Concomitant]
     Route: 065
  2. VIOXX [Suspect]
     Indication: LOCALISED OSTEOARTHRITIS
     Route: 048
     Dates: start: 20000401

REACTIONS (23)
  - ANXIETY [None]
  - ARRHYTHMIA SUPRAVENTRICULAR [None]
  - ASTHMA [None]
  - ATRIAL FIBRILLATION [None]
  - BLADDER CANCER RECURRENT [None]
  - BREAST CANCER MALE [None]
  - CATARACT [None]
  - CHRONIC OBSTRUCTIVE AIRWAYS DISEASE [None]
  - DEHYDRATION [None]
  - DIVERTICULUM [None]
  - DUODENITIS [None]
  - GASTRIC DISORDER [None]
  - GASTRITIS EROSIVE [None]
  - GASTROINTESTINAL HAEMORRHAGE [None]
  - HAEMORRHOIDS [None]
  - HYPERGLYCAEMIA [None]
  - ILEUS [None]
  - INJURY [None]
  - MYOCARDIAL INFARCTION [None]
  - OESOPHAGITIS [None]
  - PRESBYOESOPHAGUS [None]
  - RESPIRATORY TRACT INFECTION [None]
  - SMALL INTESTINAL OBSTRUCTION [None]
